FAERS Safety Report 20363875 (Version 2)
Quarter: 2022Q1

REPORT INFORMATION
  Report Type: Spontaneous
  Country: JP (occurrence: JP)
  Receive Date: 20220121
  Receipt Date: 20220314
  Transmission Date: 20220423
  Serious: Yes (Death, Life-Threatening, Hospitalization)
  Sender: FDA-Public Use
  Company Number: JP-ABBVIE-22K-087-4245442-00

PATIENT
  Age: 71 Year
  Sex: Female
  Weight: 42 kg

DRUGS (10)
  1. GLECAPREVIR\PIBRENTASVIR [Suspect]
     Active Substance: GLECAPREVIR\PIBRENTASVIR
     Indication: Hepatic cirrhosis
     Route: 048
     Dates: start: 20211125, end: 20211223
  2. URSODIOL [Concomitant]
     Active Substance: URSODIOL
     Indication: Product used for unknown indication
  3. MAGNESIUM OXIDE [Concomitant]
     Active Substance: MAGNESIUM OXIDE
     Indication: Product used for unknown indication
  4. HERBALS [Concomitant]
     Active Substance: HERBALS
     Indication: Product used for unknown indication
  5. FUROSEMIDE [Concomitant]
     Active Substance: FUROSEMIDE
     Indication: Product used for unknown indication
  6. L-ISOLEUCINE [Concomitant]
     Indication: Product used for unknown indication
  7. L-LEUCINE [Concomitant]
     Indication: Product used for unknown indication
  8. L-VALINE [Concomitant]
     Indication: Product used for unknown indication
  9. SPIRONOLACTONE [Concomitant]
     Active Substance: SPIRONOLACTONE
     Indication: Product used for unknown indication
  10. EDOXABAN TOSYLATE [Concomitant]
     Active Substance: EDOXABAN TOSYLATE
     Indication: Product used for unknown indication

REACTIONS (2)
  - Hepatocellular carcinoma [Fatal]
  - Hepatic failure [Fatal]

NARRATIVE: CASE EVENT DATE: 20211223
